FAERS Safety Report 9440467 (Version 1)
Quarter: 2013Q3

REPORT INFORMATION
  Report Type: Spontaneous
  Country: US (occurrence: US)
  Receive Date: 20130805
  Receipt Date: 20130805
  Transmission Date: 20140515
  Serious: No
  Sender: FDA-Public Use
  Company Number: US-009507513-1307USA017042

PATIENT
  Age: 91 Year
  Sex: Female

DRUGS (3)
  1. SINEMET [Suspect]
     Indication: PARKINSON^S DISEASE
     Dosage: 10-100MG / ONE TABLET TWICE DAILY
     Route: 048
     Dates: start: 20130710, end: 20130729
  2. SYNTHROID [Concomitant]
  3. WARFARIN [Concomitant]

REACTIONS (2)
  - Mental status changes [Not Recovered/Not Resolved]
  - Confusional state [Not Recovered/Not Resolved]
